FAERS Safety Report 6803972-0 (Version None)
Quarter: 2010Q2

REPORT INFORMATION
  Report Type: 
  Country: None (occurrence: None)
  Receive Date: 20100628
  Receipt Date: 20060706
  Transmission Date: 20101027
  Serious: No
  Sender: FDA-Public Use
  Company Number: US-PFIZER INC-2006084503

PATIENT
  Sex: Male

DRUGS (2)
  1. SUTENT [Suspect]
     Indication: RENAL CELL CARCINOMA
     Route: 048
     Dates: start: 20060529, end: 20060601
  2. IMMUNOSUPPRESSIVE AGENTS [Concomitant]
     Route: 065
     Dates: start: 19990101

REACTIONS (6)
  - FAECES DISCOLOURED [None]
  - INCOHERENT [None]
  - LETHARGY [None]
  - SOMNOLENCE [None]
  - SPEECH DISORDER [None]
  - WALKING DISABILITY [None]
